FAERS Safety Report 4685861-3 (Version None)
Quarter: 2005Q2

REPORT INFORMATION
  Report Type: 
  Country: None (occurrence: None)
  Receive Date: 20050606
  Receipt Date: 20050318
  Transmission Date: 20051028
  Serious: Yes (Hospitalization)
  Sender: FDA-Public Use
  Company Number: 2005BI006155

PATIENT
  Age: 54 Year
  Sex: Female
  Weight: 43.9989 kg

DRUGS (3)
  1. AVONEX [Suspect]
     Indication: MULTIPLE SCLEROSIS
     Dosage: 30 UG; QW; IM
     Route: 030
     Dates: start: 20030401, end: 20030801
  2. AVONEX [Suspect]
     Indication: MULTIPLE SCLEROSIS
     Dosage: 30 UG; QW; IM
     Route: 030
     Dates: start: 20030801
  3. FISH OIL [Concomitant]

REACTIONS (16)
  - BLISTER [None]
  - CHEST PAIN [None]
  - DIZZINESS [None]
  - GASTROOESOPHAGEAL REFLUX DISEASE [None]
  - INFLUENZA LIKE ILLNESS [None]
  - INFUSION SITE PAIN [None]
  - INFUSION SITE SWELLING [None]
  - LARYNGITIS [None]
  - NECK PAIN [None]
  - OPTIC NEURITIS [None]
  - PAIN IN EXTREMITY [None]
  - PERIPHERAL ARTERY ANEURYSM [None]
  - PERIPHERAL OCCLUSIVE DISEASE [None]
  - PHARYNGITIS [None]
  - THROMBOSIS [None]
  - TREMOR [None]
